FAERS Safety Report 8588299-1 (Version None)
Quarter: 2012Q3

REPORT INFORMATION
  Report Type: 
  Country: None (occurrence: None)
  Receive Date: 20120813
  Receipt Date: 20120801
  Transmission Date: 20120928
  Serious: Yes (Other)
  Sender: FDA-Public Use
  Company Number: US-ELI_LILLY_AND_COMPANY-US201208001462

PATIENT
  Age: 57 Year
  Sex: Female

DRUGS (11)
  1. CYMBALTA [Suspect]
     Dosage: 60 MG, QD
  2. LIPITOR [Concomitant]
  3. PROPRANOLOL [Concomitant]
  4. VOLTAREN [Concomitant]
  5. CYMBALTA [Suspect]
     Dosage: 60 MG, UNKNOWN
     Route: 065
  6. LISINOPRIL AND HYDROCHLOROTHIAZIDE [Concomitant]
  7. ESTRACE [Concomitant]
  8. KLONOPIN [Concomitant]
  9. CYMBALTA [Suspect]
     Indication: FIBROMYALGIA
     Dosage: 30 MG, UNKNOWN
  10. LORTAB [Concomitant]
  11. SOMA [Concomitant]

REACTIONS (13)
  - SKIN BURNING SENSATION [None]
  - MUSCLE SPASMS [None]
  - STOMATITIS [None]
  - HEADACHE [None]
  - HYPOTHYROIDISM [None]
  - FATIGUE [None]
  - HYPERHIDROSIS [None]
  - IRRITABILITY [None]
  - DYSPHORIA [None]
  - HORMONE LEVEL ABNORMAL [None]
  - SCAB [None]
  - RASH VESICULAR [None]
  - PRURITUS [None]
